FAERS Safety Report 12768947 (Version 1)
Quarter: 2016Q3

REPORT INFORMATION
  Report Type: Spontaneous
  Country: US (occurrence: US)
  Receive Date: 20160921
  Receipt Date: 20160921
  Transmission Date: 20161109
  Serious: No
  Sender: FDA-Public Use
  Company Number: US-JAZZ-2016-US-010236

PATIENT
  Sex: Female

DRUGS (48)
  1. XYREM [Suspect]
     Active Substance: SODIUM OXYBATE
     Dosage: 4.5 G, BID
     Route: 048
     Dates: start: 201406
  2. SULFA [Suspect]
     Active Substance: UNSPECIFIED INGREDIENT
     Indication: PRODUCT USED FOR UNKNOWN INDICATION
  3. CRANBERRY CONCENTRATE [Concomitant]
     Active Substance: CRANBERRY CONCENTRATE
  4. VIIBRYD [Concomitant]
     Active Substance: VILAZODONE HYDROCHLORIDE
  5. TECFIDERA [Concomitant]
     Active Substance: DIMETHYL FUMARATE
  6. CALCIUM [Concomitant]
     Active Substance: CALCIUM
  7. XYREM [Suspect]
     Active Substance: SODIUM OXYBATE
     Indication: NARCOLEPSY
     Dosage: 3 G, BID
     Route: 048
     Dates: start: 200703, end: 200705
  8. XYREM [Suspect]
     Active Substance: SODIUM OXYBATE
     Indication: CATAPLEXY
     Dosage: 3.25 G, BID
     Route: 048
     Dates: start: 200705, end: 200804
  9. SYNTHROID [Concomitant]
     Active Substance: LEVOTHYROXINE SODIUM
  10. BACLOFEN. [Concomitant]
     Active Substance: BACLOFEN
  11. KLONOPIN [Concomitant]
     Active Substance: CLONAZEPAM
  12. OXYCODONE HYDROCHLORIDE. [Concomitant]
     Active Substance: OXYCODONE HYDROCHLORIDE
  13. CYTOMEL [Concomitant]
     Active Substance: LIOTHYRONINE SODIUM
  14. BRINTELLIX [Concomitant]
     Active Substance: VORTIOXETINE HYDROBROMIDE
  15. VITAMIN C [Concomitant]
     Active Substance: ASCORBIC ACID
  16. POTASSIUM CL [Concomitant]
     Active Substance: POTASSIUM CHLORIDE
  17. DICLOFENAC SODIUM. [Concomitant]
     Active Substance: DICLOFENAC SODIUM
  18. GABAPENTIN. [Concomitant]
     Active Substance: GABAPENTIN
  19. FLUCONAZOLE. [Concomitant]
     Active Substance: FLUCONAZOLE
  20. XYREM [Suspect]
     Active Substance: SODIUM OXYBATE
     Dosage: 4.5 G, BID
     Route: 048
     Dates: start: 200804
  21. XYREM [Suspect]
     Active Substance: SODIUM OXYBATE
     Dosage: 3 G, BID
     Route: 048
     Dates: start: 201012, end: 201101
  22. ALPRAZOLAM. [Concomitant]
     Active Substance: ALPRAZOLAM
  23. FISH OIL [Concomitant]
     Active Substance: FISH OIL
  24. FOLIC ACID. [Concomitant]
     Active Substance: FOLIC ACID
  25. MAGNESIUM GLUCONICUM [Concomitant]
  26. FLAGYL [Concomitant]
     Active Substance: METRONIDAZOLE\METRONIDAZOLE HYDROCHLORIDE
  27. NORCO [Concomitant]
     Active Substance: ACETAMINOPHEN\HYDROCODONE BITARTRATE
  28. ADDERALL [Concomitant]
     Active Substance: AMPHETAMINE ASPARTATE\AMPHETAMINE SULFATE\DEXTROAMPHETAMINE SACCHARATE\DEXTROAMPHETAMINE SULFATE
  29. ZOLPIDEM TARTRATE. [Concomitant]
     Active Substance: ZOLPIDEM TARTRATE
  30. COPAXONE [Concomitant]
     Active Substance: GLATIRAMER ACETATE
  31. ASPIRIN. [Suspect]
     Active Substance: ASPIRIN
     Indication: PRODUCT USED FOR UNKNOWN INDICATION
     Dosage: UNK
     Dates: start: 20150505, end: 20150531
  32. HEPARIN [Suspect]
     Active Substance: HEPARIN SODIUM
     Indication: PRODUCT USED FOR UNKNOWN INDICATION
  33. AMRIX [Concomitant]
     Active Substance: CYCLOBENZAPRINE HYDROCHLORIDE
  34. XYREM [Suspect]
     Active Substance: SODIUM OXYBATE
     Dosage: 4.5 G, BID
     Route: 048
     Dates: start: 201001, end: 2012
  35. PRENATAL [Concomitant]
     Active Substance: VITAMINS
  36. NIACIN. [Concomitant]
     Active Substance: NIACIN
  37. KEPPRA [Concomitant]
     Active Substance: LEVETIRACETAM
  38. SAPHRIS [Concomitant]
     Active Substance: ASENAPINE MALEATE
  39. LATUDA [Concomitant]
     Active Substance: LURASIDONE HYDROCHLORIDE
  40. AUBAGIO [Suspect]
     Active Substance: TERIFLUNOMIDE
     Indication: PRODUCT USED FOR UNKNOWN INDICATION
     Dosage: 14 MG
     Dates: start: 20150330, end: 20151231
  41. PRILOSEC [Concomitant]
     Active Substance: OMEPRAZOLE MAGNESIUM
  42. TEGRETOL [Concomitant]
     Active Substance: CARBAMAZEPINE
  43. PERCOCET [Concomitant]
     Active Substance: ACETAMINOPHEN\OXYCODONE HYDROCHLORIDE
  44. VITAMIN D3 [Concomitant]
     Active Substance: CHOLECALCIFEROL
  45. VITAMIN B COMPLEX [Concomitant]
     Active Substance: CYANOCOBALAMIN\DEXPANTHENOL\NIACINAMIDE\PYRIDOXINE HYDROCHLORIDE\RIBOFLAVIN 5^-PHOSPHATE SODIUM\THIAMINE HYDROCHLORIDE\VITAMIN B COMPLEX
  46. ZINC GLUCONATE [Concomitant]
     Active Substance: ZINC GLUCONATE
  47. TRAZODONE HYDROCHLORIDE. [Concomitant]
     Active Substance: TRAZODONE HYDROCHLORIDE
  48. ZOLOFT [Concomitant]
     Active Substance: SERTRALINE HYDROCHLORIDE

REACTIONS (7)
  - Muscle atrophy [Not Recovered/Not Resolved]
  - Nonspecific reaction [Unknown]
  - Depression [Recovering/Resolving]
  - Blood disorder [Unknown]
  - Urinary tract infection [Unknown]
  - Unevaluable event [Unknown]
  - Bone pain [Unknown]

NARRATIVE: CASE EVENT DATE: 2015
